FAERS Safety Report 7945226-5 (Version None)
Quarter: 2011Q4

REPORT INFORMATION
  Report Type: 
  Country: None (occurrence: None)
  Receive Date: 20111129
  Receipt Date: 20110527
  Transmission Date: 20120403
  Serious: No
  Sender: FDA-Public Use
  Company Number: US-GLAXOSMITHKLINE-A0929524A

PATIENT
  Age: 61 Year
  Sex: Female

DRUGS (1)
  1. FLOVENT [Suspect]
     Indication: ASTHMA
     Dosage: 1PUFF TWICE PER DAY
     Route: 055
     Dates: start: 20110513, end: 20110518

REACTIONS (8)
  - DRUG HYPERSENSITIVITY [None]
  - SWELLING FACE [None]
  - RASH [None]
  - RASH PRURITIC [None]
  - DRY THROAT [None]
  - HEADACHE [None]
  - THROAT IRRITATION [None]
  - COUGH [None]
